FAERS Safety Report 5030625-4 (Version None)
Quarter: 2006Q2

REPORT INFORMATION
  Report Type: 
  Country: None (occurrence: None)
  Receive Date: 20060620
  Receipt Date: 20060502
  Transmission Date: 20061013
  Serious: Yes (Life-Threatening, Disabling, Other)
  Sender: FDA-Public Use
  Company Number: US-MERCK-0605USA00587

PATIENT
  Age: 64 Year
  Sex: Male
  Weight: 84 kg

DRUGS (12)
  1. MEVACOR [Suspect]
     Indication: BLOOD CHOLESTEROL INCREASED
     Route: 048
     Dates: start: 20051101, end: 20060425
  2. MEVACOR [Suspect]
     Indication: ARTERIOSCLEROSIS
     Route: 048
     Dates: start: 20051101, end: 20060425
  3. PRINIVIL [Concomitant]
     Route: 048
  4. UBIQUINONES (UNSPECIFIED) [Concomitant]
     Route: 048
  5. COSOPT [Concomitant]
     Route: 047
  6. ALPHAGAN [Concomitant]
     Route: 047
  7. TRAVATAN [Concomitant]
     Route: 047
  8. JUICE PLUS [Concomitant]
     Route: 048
  9. CALCIUM (UNSPECIFIED) AND MAGNESIUM (UNSPECIFIED) AND ZINC (UNSPECIFIE [Concomitant]
     Route: 065
  10. THIOCTIC ACID [Concomitant]
     Route: 065
  11. MINERALS (UNSPECIFIED) AND VITAMINS (UNSPECIFIED) [Concomitant]
     Route: 065
  12. OMEGA-3 MARINE TRIGLYCERIDES [Concomitant]
     Route: 065

REACTIONS (6)
  - ALANINE AMINOTRANSFERASE INCREASED [None]
  - ASPARTATE AMINOTRANSFERASE INCREASED [None]
  - CEREBRAL DISORDER [None]
  - CEREBROVASCULAR DISORDER [None]
  - HAEMORRHAGE [None]
  - MUSCLE SPASTICITY [None]
